FAERS Safety Report 5994347-5 (Version None)
Quarter: 2008Q4

REPORT INFORMATION
  Report Type: 
  Country: None (occurrence: None)
  Receive Date: 20081212
  Receipt Date: 20080905
  Transmission Date: 20090506
  Serious: No
  Sender: FDA-Public Use
  Company Number: US-ABBOTT-08P-163-0474591-00

PATIENT
  Sex: Male
  Weight: 60.382 kg

DRUGS (9)
  1. HUMIRA [Suspect]
     Indication: CROHN'S DISEASE
     Dates: start: 20080723
  2. HUMIRA [Suspect]
  3. LISINOPRIL [Concomitant]
     Indication: HYPERTENSION
     Route: 048
  4. PANTOPRAZOLE SODIUM [Concomitant]
     Indication: CROHN'S DISEASE
     Route: 048
  5. RIFAXIMIN [Concomitant]
     Indication: ANTIBIOTIC PROPHYLAXIS
     Route: 048
  6. RIFAXIMIN [Concomitant]
     Indication: GASTRIC INFECTION
  7. FOLIC ACID [Concomitant]
     Indication: CROHN'S DISEASE
     Route: 048
  8. ERGOCALCIFEROL [Concomitant]
     Indication: DRUG USE FOR UNKNOWN INDICATION
     Route: 048
  9. CYANOCOBALAMIN [Concomitant]
     Indication: CROHN'S DISEASE
     Route: 050

REACTIONS (6)
  - ABDOMINAL PAIN UPPER [None]
  - COLONIC STENOSIS [None]
  - DIARRHOEA [None]
  - INJECTION SITE ERYTHEMA [None]
  - INJECTION SITE SWELLING [None]
  - RASH [None]
